FAERS Safety Report 15472415 (Version 2)
Quarter: 2018Q4

REPORT INFORMATION
  Report Type: Spontaneous
  Country: US (occurrence: US)
  Receive Date: 20181008
  Receipt Date: 20181030
  Transmission Date: 20190205
  Serious: Yes (Other)
  Sender: FDA-Public Use
  Company Number: US-ALIMERA SCIENCES LIMITED-US-IL-2018-004128

PATIENT

DRUGS (1)
  1. ILUVIEN [Suspect]
     Active Substance: FLUOCINOLONE ACETONIDE
     Indication: DIABETIC RETINAL OEDEMA
     Dosage: 0.25 ?G, QD - UNKNOWN EYE
     Route: 031
     Dates: start: 20180720

REACTIONS (6)
  - Device dislocation [Unknown]
  - Medical device removal [Recovered/Resolved]
  - Keratopathy [Unknown]
  - Intraocular lens implant [Recovered/Resolved]
  - Vision blurred [Recovered/Resolved]
  - Corneal oedema [Unknown]

NARRATIVE: CASE EVENT DATE: 20180831
